FAERS Safety Report 6932279-6 (Version None)
Quarter: 2010Q3

REPORT INFORMATION
  Report Type: 
  Country: None (occurrence: None)
  Receive Date: 20100819
  Receipt Date: 20100809
  Transmission Date: 20110219
  Serious: Yes (Hospitalization)
  Sender: FDA-Public Use
  Company Number: CO-ROCHE-719865

PATIENT
  Sex: Female

DRUGS (6)
  1. ACTEMRA [Suspect]
     Indication: RHEUMATOID ARTHRITIS
     Dosage: FORM: UNKNOWN
     Route: 042
     Dates: start: 20091016
  2. PREDNISOLONE [Concomitant]
     Indication: RHEUMATOID ARTHRITIS
     Dosage: FREQUENCY: EVERYDAY.FORM: UNKNOWN
     Route: 048
  3. ACETAMINOPHEN [Concomitant]
     Indication: RHEUMATOID ARTHRITIS
     Dosage: FORM: UNKNOWN
     Route: 048
  4. OMEPRAZOLE [Concomitant]
     Dosage: FREQUENCY: EVERYDAY.FORM:UNKNOWN
     Route: 048
  5. FUROSEMIDE [Concomitant]
     Dosage: FREQUENCY: EVERYDAY.FORM: UNKNOWN
     Route: 048
  6. NIFEDIPINE [Concomitant]
     Dosage: FREQUENCY: EVERYDAY.FORM: UNKNOWN
     Route: 048

REACTIONS (2)
  - ANAEMIA [None]
  - ORAL MUCOSAL ERUPTION [None]
